FAERS Safety Report 15441747 (Version 1)
Quarter: 2018Q3

REPORT INFORMATION
  Report Type: Report from Study
  Country: US (occurrence: US)
  Receive Date: 20180928
  Receipt Date: 20180928
  Transmission Date: 20181010
  Serious: No
  Sender: FDA-Public Use
  Company Number: US-AMGEN-USASL2018049507

PATIENT

DRUGS (1)
  1. PROLIA [Suspect]
     Active Substance: DENOSUMAB
     Indication: PRODUCT USED FOR UNKNOWN INDICATION
     Dosage: UNK
     Route: 065

REACTIONS (7)
  - Muscle atrophy [Unknown]
  - Diarrhoea [Unknown]
  - Weight decreased [Unknown]
  - Pain of skin [Unknown]
  - Skin wrinkling [Unknown]
  - Musculoskeletal chest pain [Unknown]
  - Arthralgia [Unknown]
